FAERS Safety Report 22243336 (Version 1)
Quarter: 2023Q2

REPORT INFORMATION
  Report Type: Spontaneous
  Country: PL (occurrence: PL)
  Receive Date: 20230424
  Receipt Date: 20230424
  Transmission Date: 20230721
  Serious: Yes (Other)
  Sender: FDA-Public Use
  Company Number: PL-AMGEN-POLSP2023058002

PATIENT
  Age: 57 Year
  Sex: Male

DRUGS (5)
  1. FLUOROURACIL [Suspect]
     Active Substance: FLUOROURACIL
     Indication: Colon cancer metastatic
     Dosage: UNK UNK, CYCLICAL
     Route: 065
     Dates: start: 20220715
  2. IRINOTECAN [Suspect]
     Active Substance: IRINOTECAN
     Indication: Colon cancer metastatic
     Dosage: UNK UNK, CYCLICAL
     Route: 065
     Dates: start: 20220715
  3. FILGRASTIM [Suspect]
     Active Substance: FILGRASTIM
     Indication: Prophylaxis
     Dosage: UNK
     Route: 065
  4. LEUCOVORIN [Suspect]
     Active Substance: LEUCOVORIN
     Indication: Colon cancer metastatic
     Dosage: UNK UNK, CYCLICAL
     Route: 065
     Dates: start: 20220715
  5. VECTIBIX [Suspect]
     Active Substance: PANITUMUMAB
     Indication: Colon cancer metastatic
     Dosage: UNK UNK, CYCLICAL
     Route: 065
     Dates: start: 20220715

REACTIONS (5)
  - Rash pustular [Recovering/Resolving]
  - Hypomagnesaemia [Unknown]
  - Blepharitis [Recovering/Resolving]
  - Growth of eyelashes [Unknown]
  - Off label use [Unknown]

NARRATIVE: CASE EVENT DATE: 20220715
